FAERS Safety Report 8225578-1 (Version None)
Quarter: 2012Q1

REPORT INFORMATION
  Report Type: 
  Country: None (occurrence: None)
  Receive Date: 20120321
  Receipt Date: 20120314
  Transmission Date: 20120608
  Serious: Yes (Congenital Anomaly)
  Sender: FDA-Public Use
  Company Number: GXKR2012DE001162

PATIENT

DRUGS (2)
  1. LAMOTRIGINE [Suspect]
     Dosage: MATERNAL DOSE: 400 [MG/D ]/ FIRST TRIMESTER 350 MG/D
     Route: 064
  2. FOLIC ACID [Concomitant]
     Dosage: MATERNAL DOSE: 5 [MG/D ]
     Route: 064

REACTIONS (4)
  - THROMBOCYTOSIS [None]
  - FOETAL EXPOSURE DURING PREGNANCY [None]
  - HIP DYSPLASIA [None]
  - HAEMANGIOMA [None]
